FAERS Safety Report 6017557-X (Version None)
Quarter: 2008Q4

REPORT INFORMATION
  Report Type: 
  Country: None (occurrence: None)
  Receive Date: 20081219
  Receipt Date: 20081209
  Transmission Date: 20090506
  Serious: Yes (Congenital Anomaly)
  Sender: FDA-Public Use
  Company Number: B0550616A

PATIENT

DRUGS (3)
  1. PAROXETINE HCL [Suspect]
     Dosage: TRANSPLACENTARY
  2. DIAZEPAM [Concomitant]
  3. DIPYRONE [Concomitant]

REACTIONS (2)
  - CONGENITAL TRICUSPID VALVE INCOMPETENCE [None]
  - MATERNAL DRUGS AFFECTING FOETUS [None]
